FAERS Safety Report 24869691 (Version 3)
Quarter: 2025Q1

REPORT INFORMATION
  Report Type: Spontaneous
  Country: US (occurrence: None)
  Receive Date: 20250121
  Receipt Date: 20250321
  Transmission Date: 20250409
  Serious: Yes (Death, Hospitalization, Other)
  Sender: INCYTE
  Company Number: US-INCYTE CORPORATION-2025IN000271

PATIENT
  Age: 73 Year
  Weight: 57 kg

DRUGS (4)
  1. JAKAFI [Suspect]
     Active Substance: RUXOLITINIB
     Indication: Myelodysplastic syndrome with single lineage dysplasia
     Dosage: 5 MILLIGRAM, BID
     Route: 065
  2. JAKAFI [Suspect]
     Active Substance: RUXOLITINIB
     Indication: VEXAS syndrome
     Dosage: 10 MILLIGRAM, BID
  3. JAKAFI [Suspect]
     Active Substance: RUXOLITINIB
     Route: 065
  4. JAKAFI [Suspect]
     Active Substance: RUXOLITINIB
     Dosage: 10 MILLIGRAM, BID

REACTIONS (8)
  - Death [Fatal]
  - Haemoglobin decreased [Unknown]
  - Adrenal insufficiency [Unknown]
  - Hypothermia [Unknown]
  - Hypotension [Unknown]
  - Thrombocytopenia [Not Recovered/Not Resolved]
  - Myelodysplastic syndrome transformation [Unknown]
  - Off label use [Unknown]
